FAERS Safety Report 6192138-6 (Version None)
Quarter: 2009Q2

REPORT INFORMATION
  Report Type: 
  Country: None (occurrence: None)
  Receive Date: 20090515
  Receipt Date: 20090515
  Transmission Date: 20091009
  Serious: Yes (Other)
  Sender: FDA-Public Use
  Company Number: US-PFIZER INC-2009173371

PATIENT
  Sex: Male

DRUGS (8)
  1. VIAGRA [Suspect]
     Indication: ERECTILE DYSFUNCTION
     Dosage: 100 MG, AS NEEDED
     Dates: start: 20010101
  2. ACETYLSALICYLIC ACID [Suspect]
  3. AVODART [Concomitant]
     Dosage: UNK
  4. SYNTHROID [Concomitant]
     Dosage: UNK
  5. CELEBREX [Concomitant]
     Dosage: UNK
  6. NEXIUM [Concomitant]
     Dosage: UNK
  7. VITAMINS [Concomitant]
     Dosage: UNK
  8. GLUCOSAMINE [Concomitant]
     Dosage: UNK

REACTIONS (3)
  - ANGIOGRAM ABNORMAL [None]
  - BLINDNESS [None]
  - VISION BLURRED [None]
